FAERS Safety Report 14262016 (Version 1)
Quarter: 2017Q4

REPORT INFORMATION
  Report Type: Spontaneous
  Country: US (occurrence: US)
  Receive Date: 20171208
  Receipt Date: 20171208
  Transmission Date: 20180321
  Serious: Yes (Hospitalization, Other)
  Sender: FDA-Public Use
  Company Number: US-009507513-1712USA002112

PATIENT
  Age: 63 Year
  Sex: Male
  Weight: 117.3 kg

DRUGS (15)
  1. KEYTRUDA [Suspect]
     Active Substance: PEMBROLIZUMAB
     Indication: MALIGNANT MELANOMA
     Dosage: 200 MG, Q3W
     Route: 042
     Dates: start: 20171102, end: 20171122
  2. MAGNESIUM CHLORIDE. [Concomitant]
     Active Substance: MAGNESIUM CHLORIDE
     Indication: ROUTINE HEALTH MAINTENANCE
     Dosage: 71.5 MG, QD
     Route: 048
     Dates: start: 20170223
  3. CHERATUSSIN COUGH SYRUP [Concomitant]
     Indication: COUGH
     Dosage: 5 ML, PRN
     Route: 048
     Dates: start: 20171122
  4. PRINIVIL [Concomitant]
     Active Substance: LISINOPRIL
     Indication: HYPERTENSION
     Dosage: 20 MG, QD
     Route: 048
     Dates: start: 2013
  5. ALBUTEROL. [Concomitant]
     Active Substance: ALBUTEROL
     Indication: WHEEZING
     Dosage: 2 PUFFS, PRN, INHALATION (IH)
     Dates: start: 20171122
  6. IPILIMUMAB [Suspect]
     Active Substance: IPILIMUMAB
     Dosage: 1 MG/KG, Q3W
     Route: 042
     Dates: start: 20171102, end: 20171122
  7. VITAMINS (UNSPECIFIED) [Concomitant]
     Active Substance: VITAMINS
     Indication: ROUTINE HEALTH MAINTENANCE
     Dosage: 1 TABLET, QD
     Route: 048
     Dates: start: 2002
  8. HALLS MENTHOLYPTUS [Concomitant]
     Active Substance: MENTHOL
     Indication: NASAL CONGESTION
  9. LORATADINE (+) PSEUDOEPHEDRINE SULFATE [Concomitant]
     Indication: NASOPHARYNGITIS
     Dosage: 1 TABLET, PRN
     Route: 048
     Dates: start: 201708
  10. LORATADINE. [Concomitant]
     Active Substance: LORATADINE
     Indication: PARANASAL SINUS HYPERSECRETION
     Dosage: 10 MG, PRN
     Route: 048
     Dates: start: 20171122
  11. HALLS MENTHOLYPTUS [Concomitant]
     Active Substance: MENTHOL
     Indication: NASOPHARYNGITIS
     Dosage: 1 DROP, PRN
     Route: 048
     Dates: start: 20171030
  12. AUGMENTIN [Suspect]
     Active Substance: AMOXICILLIN\CLAVULANATE POTASSIUM
     Indication: OTITIS MEDIA ACUTE
     Dosage: DOSE: 875-125MG, BID
     Route: 048
     Dates: start: 20171122, end: 20171126
  13. PRAVASTATIN. [Concomitant]
     Active Substance: PRAVASTATIN
     Indication: HYPERLIPIDAEMIA
     Dosage: 40 MG, QD
     Route: 048
     Dates: start: 2013
  14. FLONASE [Concomitant]
     Active Substance: FLUTICASONE PROPIONATE
     Indication: PARANASAL SINUS HYPERSECRETION
     Dosage: 50 MICROGRAM, PRN, INTRANASAL (IN)
     Route: 033
     Dates: start: 20171122
  15. LORATADINE (+) PSEUDOEPHEDRINE SULFATE [Concomitant]
     Indication: NASAL CONGESTION

REACTIONS (5)
  - Diarrhoea [Unknown]
  - Pruritus [Unknown]
  - Rash [Unknown]
  - Hypomagnesaemia [Unknown]
  - Pneumonia [Unknown]

NARRATIVE: CASE EVENT DATE: 20171122
